FAERS Safety Report 6287638-4 (Version None)
Quarter: 2009Q3

REPORT INFORMATION
  Report Type: 
  Country: None (occurrence: None)
  Receive Date: 20090727
  Receipt Date: 20090727
  Transmission Date: 20100115
  Serious: No
  Sender: FDA-Public Use
  Company Number: None

PATIENT
  Sex: Male
  Weight: 120 kg

DRUGS (6)
  1. PREDNISONE [Suspect]
     Dosage: 1400 MG
  2. RITUXIMAB (MOAB C2B8 ANTI CD20, CHIMERIC) [Suspect]
     Dosage: 850 MG
  3. VINCRISTINE SULFATE [Suspect]
     Dosage: 3.6 MG
  4. CYCLOPHOSPHAMIDE [Suspect]
     Dosage: 2475 MG
  5. DOXORUBICIN HCL [Suspect]
     Dosage: 132 MG
  6. ETOPOSIDE [Suspect]
     Dosage: 660 MG

REACTIONS (1)
  - HYPERGLYCAEMIA [None]
